FAERS Safety Report 18376040 (Version 1)
Quarter: 2020Q4

REPORT INFORMATION
  Report Type: Spontaneous
  Country: US (occurrence: US)
  Receive Date: 20201013
  Receipt Date: 20201013
  Transmission Date: 20210114
  Serious: Yes (Disabling)
  Sender: FDA-Public Use
  Company Number: US-TEVA-2020-US-1838524

PATIENT
  Age: 50 Year
  Sex: Female
  Weight: 63.56 kg

DRUGS (18)
  1. CARBOPLATIN. [Concomitant]
     Active Substance: CARBOPLATIN
     Indication: BREAST CANCER
     Dosage: EVERY 3 WEEKS FOR 6 CYCLES
     Route: 065
     Dates: start: 20131017, end: 20140213
  2. HYDROCODONE/ACETAMINOPHEN [Concomitant]
     Active Substance: ACETAMINOPHEN\HYDROCODONE
  3. OMEPRAZOLE. [Concomitant]
     Active Substance: OMEPRAZOLE
  4. PRISTIQ EXTENDED-RELEASE [Concomitant]
     Active Substance: DESVENLAFAXINE SUCCINATE
  5. DICYCLOMINE [Concomitant]
     Active Substance: DICYCLOMINE HYDROCHLORIDE
  6. SOMA [Concomitant]
     Active Substance: CARISOPRODOL
  7. OXYCONTIN [Concomitant]
     Active Substance: OXYCODONE HYDROCHLORIDE
     Dates: start: 2005, end: 2018
  8. ALPRAZOLAM. [Concomitant]
     Active Substance: ALPRAZOLAM
  9. HYDROCHIOROTHIAZIDE [Concomitant]
  10. LIDODERM [Concomitant]
     Active Substance: LIDOCAINE
  11. DOCETAXEL. [Suspect]
     Active Substance: DOCETAXEL
     Indication: BREAST CANCER
     Dosage: 160MG, EVERY 3 WEEKS FOR 6 CYCLES
     Route: 065
     Dates: start: 20131017, end: 20140213
  12. PROMETHAZINE [Concomitant]
     Active Substance: PROMETHAZINE HYDROCHLORIDE
  13. ROPINIROLE. [Concomitant]
     Active Substance: ROPINIROLE
  14. AMITRIPTYLIN [Concomitant]
     Active Substance: AMITRIPTYLINE
  15. SINGULAIR [Concomitant]
     Active Substance: MONTELUKAST SODIUM
  16. SPIRIVA [Concomitant]
     Active Substance: TIOTROPIUM BROMIDE MONOHYDRATE
  17. ATENOLOL. [Concomitant]
     Active Substance: ATENOLOL
  18. TYLENOL [Concomitant]
     Active Substance: ACETAMINOPHEN

REACTIONS (4)
  - Alopecia areata [Unknown]
  - Hair texture abnormal [Not Recovered/Not Resolved]
  - Madarosis [Not Recovered/Not Resolved]
  - Hair colour changes [Not Recovered/Not Resolved]

NARRATIVE: CASE EVENT DATE: 20140813
